FAERS Safety Report 25273794 (Version 3)
Quarter: 2025Q3

REPORT INFORMATION
  Report Type: Spontaneous
  Country: MX (occurrence: MX)
  Receive Date: 20250506
  Receipt Date: 20250715
  Transmission Date: 20251021
  Serious: Yes (Hospitalization)
  Sender: MERCK SHARP & DOHME LLC
  Company Number: MX-009507513-2276752

PATIENT
  Age: 64 Year
  Sex: Male
  Weight: 86 kg

DRUGS (4)
  1. EMEND [Suspect]
     Active Substance: APREPITANT
     Indication: Premedication
     Dosage: 150 MG (DILUTED IN 150ML OF SALINE SOLUTION FOR 20 MINUTES) EVERY 3 WEEKS
     Route: 042
     Dates: start: 20250326, end: 20250326
  2. Cloropiramina [Concomitant]
     Indication: Premedication
     Route: 042
     Dates: start: 20250326, end: 20250326
  3. DEXAMETHASONE [Concomitant]
     Active Substance: DEXAMETHASONE
     Indication: Premedication
     Route: 042
     Dates: start: 20250326, end: 20250326
  4. PALONOSETRON [Concomitant]
     Active Substance: PALONOSETRON
     Indication: Premedication
     Route: 042
     Dates: start: 20250326, end: 20250326

REACTIONS (5)
  - Dyspnoea [Recovered/Resolved]
  - Oxygen saturation decreased [Unknown]
  - Skin burning sensation [Recovered/Resolved]
  - Erythema [Recovered/Resolved]
  - Ocular hyperaemia [Recovered/Resolved]

NARRATIVE: CASE EVENT DATE: 20250326
